FAERS Safety Report 21842498 (Version 2)
Quarter: 2023Q1

REPORT INFORMATION
  Report Type: Report from Study
  Country: US (occurrence: US)
  Receive Date: 20230110
  Receipt Date: 20230323
  Transmission Date: 20230417
  Serious: No
  Sender: FDA-Public Use
  Company Number: US-ABBVIE-4255594

PATIENT
  Age: 34 Year
  Sex: Female

DRUGS (2)
  1. RINVOQ [Suspect]
     Active Substance: UPADACITINIB
     Indication: Colitis ulcerative
     Dosage: ER?45MG TABLET PER ORAL ONCE DAILY FIRST 8 WEEKS; 15MG TABLET PER ORAL ONCE DAILY THEREAFTER
     Route: 048
     Dates: start: 20221201
  2. RINVOQ [Suspect]
     Active Substance: UPADACITINIB
     Indication: Colitis ulcerative
     Dosage: FORM STRENGTH: 15 MILLIGRAM
     Route: 048
     Dates: start: 202301

REACTIONS (24)
  - Nasopharyngitis [Unknown]
  - Muscle spasms [Unknown]
  - Speech disorder [Unknown]
  - Aphonia [Unknown]
  - Lower respiratory tract infection [Not Recovered/Not Resolved]
  - Unevaluable event [Recovering/Resolving]
  - Chills [Unknown]
  - Insomnia [Unknown]
  - Arthralgia [Unknown]
  - Productive cough [Not Recovered/Not Resolved]
  - Decreased appetite [Unknown]
  - Frequent bowel movements [Unknown]
  - Abdominal pain [Unknown]
  - General physical health deterioration [Unknown]
  - Fatigue [Unknown]
  - Loss of personal independence in daily activities [Unknown]
  - Pyrexia [Not Recovered/Not Resolved]
  - Inflammation [Recovering/Resolving]
  - Hyperhidrosis [Unknown]
  - Constipation [Unknown]
  - Fatigue [Unknown]
  - Abdominal distension [Unknown]
  - Diarrhoea [Unknown]
  - Asthenia [Unknown]

NARRATIVE: CASE EVENT DATE: 20221201
